FAERS Safety Report 6723305-8 (Version None)
Quarter: 2010Q2

REPORT INFORMATION
  Report Type: 
  Country: None (occurrence: None)
  Receive Date: 20100513
  Receipt Date: 20100504
  Transmission Date: 20101027
  Serious: Yes (Death, Hospitalization)
  Sender: FDA-Public Use
  Company Number: FR-KINGPHARMUSA00001-K201000538

PATIENT
  Age: 60 Year
  Sex: Female
  Weight: 55 kg

DRUGS (11)
  1. ALTACE [Suspect]
     Dosage: UNK
     Route: 048
     Dates: start: 20100301, end: 20100304
  2. ALTACE [Suspect]
     Dosage: UNK
     Route: 048
     Dates: start: 20100307, end: 20100308
  3. KETAMINE [Suspect]
     Dosage: UNK
     Route: 042
     Dates: start: 20100224, end: 20100225
  4. KETAMINE [Suspect]
     Dosage: UNK
     Route: 042
     Dates: start: 20100302, end: 20100311
  5. CATAPRESAN [Suspect]
     Dosage: UNK
     Route: 042
     Dates: start: 20100228, end: 20100315
  6. FUROSEMIDE [Suspect]
     Dosage: UNK
     Route: 042
     Dates: start: 20100224, end: 20100312
  7. PIPERACILLIN AND TAZOBACTAM [Suspect]
     Dosage: 1 DF, BID
     Route: 042
     Dates: start: 20100225, end: 20100311
  8. SANDOSTATIN [Suspect]
     Dosage: 100 MCG, TID
     Route: 058
     Dates: start: 20100303, end: 20100310
  9. HALOPERIDOL [Suspect]
     Dosage: 0.5 MG, TID
     Route: 042
     Dates: start: 20100303, end: 20100306
  10. PARTUSISTEN [Suspect]
     Dosage: 1 MG, QD
     Route: 042
     Dates: start: 20100303, end: 20100315
  11. XENETIX [Suspect]
     Dosage: 100 ML, SINGLE
     Route: 042
     Dates: start: 20100305, end: 20100305

REACTIONS (4)
  - AGRANULOCYTOSIS [None]
  - DEATH [None]
  - NEUTROPHIL COUNT DECREASED [None]
  - WHITE BLOOD CELL COUNT INCREASED [None]
